FAERS Safety Report 7420313-9 (Version None)
Quarter: 2011Q2

REPORT INFORMATION
  Report Type: 
  Country: None (occurrence: None)
  Receive Date: 20110418
  Receipt Date: 20110407
  Transmission Date: 20111010
  Serious: Yes (Other)
  Sender: FDA-Public Use
  Company Number: PHHY2011FR30072

PATIENT
  Age: 59 Year
  Sex: Female

DRUGS (5)
  1. FORADIL [Suspect]
     Indication: BRONCHITIS
     Dosage: UNK
     Dates: start: 20110318, end: 20110402
  2. AERIUS [Concomitant]
  3. VASTAREL [Concomitant]
  4. MIFLONIL [Suspect]
     Indication: BRONCHITIS
     Dosage: UNK
     Dates: start: 20110318
  5. BETA-ALANINE [Concomitant]

REACTIONS (3)
  - HYPERSOMNIA [None]
  - DEPRESSION [None]
  - ASTHENIA [None]
